FAERS Safety Report 13897590 (Version 3)
Quarter: 2018Q3

REPORT INFORMATION
  Report Type: Spontaneous
  Country: GR (occurrence: GR)
  Receive Date: 20170823
  Receipt Date: 20180703
  Transmission Date: 20181010
  Serious: Yes (Other)
  Sender: FDA-Public Use
  Company Number: GR-009507513-1708GRC008254

PATIENT
  Age: 61 Year
  Sex: Female

DRUGS (3)
  1. REMERON [Suspect]
     Active Substance: MIRTAZAPINE
     Indication: ANOREXIA NERVOSA
  2. XANAX [Concomitant]
     Active Substance: ALPRAZOLAM
     Dosage: 1 IN THE MORNING, NOON, AFTERNOON AND AT NIGHT
  3. REMERON [Suspect]
     Active Substance: MIRTAZAPINE
     Indication: DEPRESSION
     Dosage: 1/2 TABLET AT NOON AND 1 TABLET AT NIGHT
     Route: 048

REACTIONS (8)
  - Adverse event [Unknown]
  - Asthenia [Not Recovered/Not Resolved]
  - Product use in unapproved indication [Unknown]
  - Infected bite [Unknown]
  - Pyrexia [Not Recovered/Not Resolved]
  - Swelling face [Unknown]
  - Decreased appetite [Recovering/Resolving]
  - Anaphylactic shock [Unknown]

NARRATIVE: CASE EVENT DATE: 20170813
